FAERS Safety Report 20561925 (Version 2)
Quarter: 2022Q1

REPORT INFORMATION
  Report Type: Report from Study
  Country: CA (occurrence: CA)
  Receive Date: 20220307
  Receipt Date: 20220322
  Transmission Date: 20220423
  Serious: Yes (Other)
  Sender: FDA-Public Use
  Company Number: CA-JNJFOC-20220300519

PATIENT
  Age: 13 Year
  Sex: Female
  Weight: 51.5 kg

DRUGS (1)
  1. REMICADE [Suspect]
     Active Substance: INFLIXIMAB
     Indication: Colitis ulcerative
     Dosage: DOCTOR DECIDED TO STOP TREATMENT AND SWITCH TO ANOTHER MOLECULE
     Route: 042
     Dates: start: 20220117, end: 20220228

REACTIONS (2)
  - Infusion related reaction [Recovered/Resolved]
  - Menstrual disorder [Recovering/Resolving]

NARRATIVE: CASE EVENT DATE: 20220101
